FAERS Safety Report 16791792 (Version 3)
Quarter: 2019Q4

REPORT INFORMATION
  Report Type: Report from Study
  Country: US (occurrence: US)
  Receive Date: 20190910
  Receipt Date: 20191216
  Transmission Date: 20200122
  Serious: No
  Sender: FDA-Public Use
  Company Number: PHEH2019US036369

PATIENT
  Sex: Female

DRUGS (2)
  1. LYRICA [Concomitant]
     Active Substance: PREGABALIN
     Indication: PRODUCT USED FOR UNKNOWN INDICATION
     Dosage: 150 MG, UNK (2 DAY)
     Route: 065
  2. COSENTYX [Suspect]
     Active Substance: SECUKINUMAB
     Indication: PRODUCT USED FOR UNKNOWN INDICATION
     Dosage: 300 MG, Q4W
     Route: 065
     Dates: start: 20161003

REACTIONS (3)
  - Accidental exposure to product [Unknown]
  - Incorrect dose administered by device [Unknown]
  - Device malfunction [Unknown]
